FAERS Safety Report 19599935 (Version 1)
Quarter: 2021Q3

REPORT INFORMATION
  Report Type: Spontaneous
  Country: FR (occurrence: FR)
  Receive Date: 20210722
  Receipt Date: 20210722
  Transmission Date: 20211014
  Serious: Yes (Hospitalization)
  Sender: FDA-Public Use
  Company Number: FR-PFIZER INC-2021867008

PATIENT
  Age: 31 Year
  Sex: Female
  Weight: 67 kg

DRUGS (1)
  1. ADEPAL [Suspect]
     Active Substance: ETHINYL ESTRADIOL\LEVONORGESTREL
     Indication: HORMONAL CONTRACEPTION
     Dosage: 1 DF, 1X/DAY, LONG TERM TREATMENT
     Route: 048
     Dates: end: 20210526

REACTIONS (1)
  - Ischaemic stroke [Recovering/Resolving]

NARRATIVE: CASE EVENT DATE: 20210526
